FAERS Safety Report 7591247-4 (Version None)
Quarter: 2011Q3

REPORT INFORMATION
  Report Type: 
  Country: None (occurrence: None)
  Receive Date: 20110706
  Receipt Date: 20110627
  Transmission Date: 20111222
  Serious: Yes (Hospitalization)
  Sender: FDA-Public Use
  Company Number: US-BIOGENIDEC-2010BI044674

PATIENT
  Age: 28 Year
  Sex: Female
  Weight: 81 kg

DRUGS (2)
  1. BLOOD PRESSURE MEDICATION (NOS) [Concomitant]
     Indication: HYPERTENSION
     Dates: start: 20090101
  2. TYSABRI [Suspect]
     Indication: MULTIPLE SCLEROSIS
     Route: 042
     Dates: start: 20100511

REACTIONS (5)
  - MULTIPLE SCLEROSIS RELAPSE [None]
  - PAIN IN EXTREMITY [None]
  - BLOOD GLUCOSE INCREASED [None]
  - DIZZINESS [None]
  - BURNING SENSATION [None]
